FAERS Safety Report 19695505 (Version 5)
Quarter: 2023Q4

REPORT INFORMATION
  Report Type: Spontaneous
  Country: US (occurrence: US)
  Receive Date: 20210813
  Receipt Date: 20231130
  Transmission Date: 20240109
  Serious: Yes (Disabling, Other)
  Sender: FDA-Public Use
  Company Number: US-SA-SAC20210811000475

PATIENT
  Age: 21 Year
  Sex: Female
  Weight: 41.3 kg

DRUGS (17)
  1. KEVZARA [Suspect]
     Active Substance: SARILUMAB
     Indication: Rheumatoid arthritis
     Dosage: 200 MG, QOW
     Route: 058
     Dates: start: 202007
  2. PREDNISONE [Concomitant]
     Active Substance: PREDNISONE
     Dosage: UNK, 15 MG DAILY FOR 2 WEEKS, 10 MG DAILY FOR 2 WEEKS, 5 MG DAILY FOR 1 MONTH
     Dates: start: 20210730
  3. NAPROXEN [Concomitant]
     Active Substance: NAPROXEN
     Dosage: 1 DF, 2 TIMES DAILY AS NEEDED
     Route: 048
     Dates: start: 20210730
  4. ALBUTEROL SULFATE [Concomitant]
     Active Substance: ALBUTEROL SULFATE
     Dosage: 2 PUFFS EVERY 4 HOURS AS NEEDED
  5. PROAIR HFA [Concomitant]
     Active Substance: ALBUTEROL SULFATE
  6. MINERALS\VITAMINS [Concomitant]
     Active Substance: MINERALS\VITAMINS
  7. ZYRTEC [Concomitant]
     Active Substance: CETIRIZINE HYDROCHLORIDE
     Dosage: 1 DF, QD
     Dates: start: 20210216
  8. CHOLECALCIFEROL [Concomitant]
     Active Substance: CHOLECALCIFEROL
  9. VITAMIN B12 [Concomitant]
     Active Substance: CYANOCOBALAMIN
     Dosage: UNK UNK, QOD
     Route: 048
  10. HERBALS\TURMERIC [Concomitant]
     Active Substance: HERBALS\TURMERIC
     Dosage: UNK, QD
     Route: 048
  11. DIETARY SUPPLEMENT\HERBALS\INDIAN FRANKINCENSE [Concomitant]
     Active Substance: DIETARY SUPPLEMENT\HERBALS\INDIAN FRANKINCENSE
     Dosage: UNK
     Route: 048
  12. ZADITOR [Concomitant]
     Active Substance: KETOTIFEN FUMARATE
     Dosage: 1 DROP IN EYES 2 TIMES DAILY AS NEEDED
     Dates: start: 20210216
  13. IRON\VITAMINS [Concomitant]
     Active Substance: IRON\VITAMINS
     Dosage: UNK
  14. MSM [Concomitant]
     Active Substance: DIMETHYL SULFONE
     Dosage: 1 DF, QD
  15. STRATTERA [Concomitant]
     Active Substance: ATOMOXETINE HYDROCHLORIDE
     Dosage: 30 MG
     Route: 048
  16. METHOTREXATE [Concomitant]
     Active Substance: METHOTREXATE
  17. FOLIC ACID [Concomitant]
     Active Substance: FOLIC ACID
     Dosage: 1 DF, QD
     Route: 048
     Dates: start: 20210302

REACTIONS (24)
  - Abortion spontaneous [Unknown]
  - Rheumatoid arthritis [Unknown]
  - Joint swelling [Unknown]
  - Joint stiffness [Unknown]
  - Joint warmth [Unknown]
  - Mobility decreased [Unknown]
  - Arthralgia [Unknown]
  - Loss of personal independence in daily activities [Unknown]
  - Joint range of motion decreased [Unknown]
  - Musculoskeletal stiffness [Recovered/Resolved]
  - Weight decreased [Unknown]
  - Headache [Unknown]
  - Decreased appetite [Unknown]
  - Nausea [Unknown]
  - Myalgia [Unknown]
  - Memory impairment [Unknown]
  - Neck pain [Unknown]
  - Back pain [Unknown]
  - Synovitis [Unknown]
  - Joint effusion [Unknown]
  - Inflammatory marker increased [Unknown]
  - Anti-cyclic citrullinated peptide antibody positive [Unknown]
  - Exposure during pregnancy [Unknown]
  - Product dose omission issue [Unknown]
